FAERS Safety Report 18445619 (Version 3)
Quarter: 2021Q2

REPORT INFORMATION
  Report Type: Report from Study
  Country: BR (occurrence: BR)
  Receive Date: 20201030
  Receipt Date: 20210624
  Transmission Date: 20210717
  Serious: Yes (Other)
  Sender: FDA-Public Use
  Company Number: BR-JNJFOC-20201034504

PATIENT
  Age: 40 Year
  Sex: Female
  Weight: 75 kg

DRUGS (2)
  1. INFLIXIMAB, RECOMBINANT [Suspect]
     Active Substance: INFLIXIMAB
     Indication: CROHN^S DISEASE
     Dosage: 0,2, AND 6 WEEKS DOSE (INDUCTION DOSE)
     Route: 042
     Dates: start: 201611, end: 2019
  2. REMICADE [Suspect]
     Active Substance: INFLIXIMAB
     Indication: CROHN^S DISEASE
     Dosage: 0,2, AND 6 WEEKS DOSE (INDUCTION DOSE)
     Route: 042
     Dates: start: 20160913, end: 20190618

REACTIONS (3)
  - Weight increased [Unknown]
  - Pulmonary tuberculosis [Unknown]
  - Lymph node tuberculosis [Unknown]

NARRATIVE: CASE EVENT DATE: 201901
